FAERS Safety Report 13967283 (Version 2)
Quarter: 2017Q4

REPORT INFORMATION
  Report Type: Report from Study
  Country: US (occurrence: US)
  Receive Date: 20170914
  Receipt Date: 20171009
  Transmission Date: 20180320
  Serious: No
  Sender: FDA-Public Use
  Company Number: US-AMGEN-USASL2017138512

PATIENT
  Age: 58 Year
  Sex: Male

DRUGS (2)
  1. ENBREL [Suspect]
     Active Substance: ETANERCEPT
     Indication: PSORIATIC ARTHROPATHY
  2. ENBREL [Suspect]
     Active Substance: ETANERCEPT
     Indication: RHEUMATOID ARTHRITIS
     Dosage: 50 MG, QWK
     Route: 065
     Dates: start: 201706

REACTIONS (7)
  - Injection site reaction [Unknown]
  - Fatigue [Unknown]
  - Malaise [Unknown]
  - Pain in extremity [Unknown]
  - Drug ineffective [Unknown]
  - Throat irritation [Not Recovered/Not Resolved]
  - Disturbance in sexual arousal [Unknown]

NARRATIVE: CASE EVENT DATE: 2017
